FAERS Safety Report 19575686 (Version 1)
Quarter: 2021Q3

REPORT INFORMATION
  Report Type: Spontaneous
  Country: US (occurrence: US)
  Receive Date: 20210719
  Receipt Date: 20210719
  Transmission Date: 20211014
  Serious: No
  Sender: FDA-Public Use
  Company Number: US-SA-2021SA226274

PATIENT
  Age: 63 Year
  Sex: Male

DRUGS (1)
  1. LANTUS SOLOSTAR [Suspect]
     Active Substance: INSULIN GLARGINE
     Indication: TYPE 2 DIABETES MELLITUS
     Dosage: DRUG STRUCTURE DOSAGE : 34 UNITS (SEE EVENT INFORMATION FOR DETAILS) DRUG INTERVAL DOSAGE : EVERY EV

REACTIONS (2)
  - Intentional product use issue [Unknown]
  - Multiple use of single-use product [Unknown]
